FAERS Safety Report 12211015 (Version 1)
Quarter: 2016Q1

REPORT INFORMATION
  Report Type: Spontaneous
  Country: US (occurrence: US)
  Receive Date: 20160325
  Receipt Date: 20160325
  Transmission Date: 20160526
  Serious: Yes (Hospitalization)
  Sender: FDA-Public Use
  Company Number: US-PFIZER INC-2016164060

PATIENT
  Age: 52 Year
  Sex: Male

DRUGS (1)
  1. SUTENT [Suspect]
     Active Substance: SUNITINIB MALATE
     Indication: RENAL CANCER STAGE IV
     Dosage: 50 MG, CYCLIC (DAILY 4 WKS ON, 2 WEEKS OFF)
     Route: 048
     Dates: start: 20160208

REACTIONS (2)
  - Skin ulcer [Unknown]
  - Chest pain [Unknown]

NARRATIVE: CASE EVENT DATE: 20160301
